FAERS Safety Report 7258908-8 (Version None)
Quarter: 2011Q1

REPORT INFORMATION
  Report Type: 
  Country: None (occurrence: None)
  Receive Date: 20110129
  Receipt Date: 20100611
  Transmission Date: 20110831
  Serious: No
  Sender: FDA-Public Use
  Company Number: US-ABBOTT-10P-163-0651172-00

PATIENT
  Age: 30 Year
  Sex: Female

DRUGS (3)
  1. VICODIN [Concomitant]
     Indication: PAIN
     Dosage: 5/500 MG, TAKES 1/2 AS NEEDED
  2. VICODIN [Concomitant]
     Indication: CROHN'S DISEASE
  3. HUMIRA [Suspect]
     Indication: CROHN'S DISEASE
     Dates: start: 20090701

REACTIONS (1)
  - AMENORRHOEA [None]
